FAERS Safety Report 8632564 (Version 2)
Quarter: 2013Q1

REPORT INFORMATION
  Report Type: Spontaneous
  Country: US (occurrence: US)
  Receive Date: 20120625
  Receipt Date: 20130328
  Transmission Date: 20140127
  Serious: Yes (Hospitalization, Other)
  Sender: FDA-Public Use
  Company Number: US-BAYER-2012-061606

PATIENT
  Age: 41 Year
  Sex: Female
  Weight: 72.7 kg

DRUGS (9)
  1. YASMIN [Suspect]
     Indication: ACNE
  2. YAZ [Suspect]
     Indication: ACNE
  3. OCELLA [Suspect]
     Indication: ACNE
  4. TOPAMAX [Concomitant]
     Dosage: UNK
  5. LEVOXYL [Concomitant]
     Dosage: UNK
  6. VICODIN [Concomitant]
     Dosage: UNK UNK, PRN
  7. AMERGE [Concomitant]
     Dosage: UNK
     Dates: start: 20060811
  8. STADOL [Concomitant]
     Dosage: 2 MG,X 1
     Dates: start: 20060811
  9. PHENERGAN [Concomitant]
     Dosage: 25 MG, UNK
     Route: 030
     Dates: start: 20060811

REACTIONS (7)
  - Pulmonary embolism [None]
  - Deep vein thrombosis [None]
  - Deep vein thrombosis [None]
  - Deep vein thrombosis [None]
  - Injury [None]
  - Pain [None]
  - Pain [None]
